FAERS Safety Report 8305776-9 (Version None)
Quarter: 2012Q2

REPORT INFORMATION
  Report Type: 
  Country: None (occurrence: None)
  Receive Date: 20120423
  Receipt Date: 20120418
  Transmission Date: 20120825
  Serious: No
  Sender: FDA-Public Use
  Company Number: US-PFIZER INC-2012096443

PATIENT
  Sex: Female
  Weight: 59.864 kg

DRUGS (7)
  1. SYNTHROID [Concomitant]
     Indication: THYROID DISORDER
     Dosage: 75 UG, DAILY
  2. LIPITOR [Suspect]
     Indication: BLOOD CHOLESTEROL INCREASED
     Dosage: UNK
     Dates: end: 20120301
  3. NEXIUM [Concomitant]
     Indication: GASTROOESOPHAGEAL REFLUX DISEASE
     Dosage: 20 MG, DAILY
  4. ZEGERID [Concomitant]
     Indication: GASTROOESOPHAGEAL REFLUX DISEASE
     Dosage: UNK, DAILY
  5. LISINOPRIL AND HYDROCHLOROTHIAZIDE [Concomitant]
     Indication: HYPERTENSION
     Dosage: 20/25 MG, 2X/DAY
  6. LYRICA [Concomitant]
     Indication: FIBROMYALGIA
     Dosage: 50 MG, DAILY
  7. GLUCOSAMINE SULFATE [Concomitant]
     Indication: OSTEOPOROSIS
     Dosage: 2000 MG, DAILY

REACTIONS (1)
  - MALAISE [None]
